FAERS Safety Report 5903968-7 (Version None)
Quarter: 2008Q3

REPORT INFORMATION
  Report Type: 
  Country: None (occurrence: None)
  Receive Date: 20080919
  Receipt Date: 20080707
  Transmission Date: 20090109
  Serious: No
  Sender: FDA-Public Use
  Company Number: US-WYE-H04935508

PATIENT
  Age: 52 Year
  Sex: Male
  Weight: 131.66 kg

DRUGS (5)
  1. PRISTIQ [Suspect]
     Indication: ATTENTION DEFICIT/HYPERACTIVITY DISORDER
     Dosage: MG 1X PER 1 DAY, ORAL
     Route: 048
     Dates: start: 20080706
  2. SYNTHROID [Concomitant]
  3. CRESTOR [Concomitant]
  4. TESTOSTERONE [Concomitant]
  5. TRICOR [Concomitant]

REACTIONS (6)
  - ANXIETY [None]
  - DRUG EFFECT DECREASED [None]
  - HEADACHE [None]
  - SINUS HEADACHE [None]
  - TOOTHACHE [None]
  - UNEVALUABLE EVENT [None]
